FAERS Safety Report 13824581 (Version 1)
Quarter: 2017Q3

REPORT INFORMATION
  Report Type: Spontaneous
  Country: US (occurrence: US)
  Receive Date: 20170801
  Receipt Date: 20170801
  Transmission Date: 20171127
  Serious: Yes (Other)
  Sender: FDA-Public Use
  Company Number: None

PATIENT
  Age: 51 Year
  Sex: Female
  Weight: 117 kg

DRUGS (5)
  1. VITAMIN D [Concomitant]
     Active Substance: CHOLECALCIFEROL
  2. DESITIN LOTION (ZINC OXIDE) [Suspect]
     Active Substance: ZINC OXIDE
     Indication: RASH
     Dosage: OTHER STRENGTH:6 OZ.;QUANTITY:1 ONE APPLICATION;?
     Route: 061
     Dates: start: 20170722, end: 20170722
  3. ENALAPRIL [Concomitant]
     Active Substance: ENALAPRIL
  4. ZOLOFT [Concomitant]
     Active Substance: SERTRALINE HYDROCHLORIDE
  5. MULTI VITAMIN [Concomitant]
     Active Substance: VITAMINS

REACTIONS (3)
  - Rash [None]
  - Dermatitis contact [None]
  - Chemical burn [None]

NARRATIVE: CASE EVENT DATE: 20170722
